FAERS Safety Report 7919090-4 (Version None)
Quarter: 2011Q4

REPORT INFORMATION
  Report Type: 
  Country: None (occurrence: None)
  Receive Date: 20111116
  Receipt Date: 20111107
  Transmission Date: 20120403
  Serious: Yes (Hospitalization)
  Sender: FDA-Public Use
  Company Number: DE-ASTRAZENECA-2011SE67627

PATIENT
  Age: 66 Year
  Sex: Female

DRUGS (17)
  1. VENLAFAXINE HYDROCHLORIDE [Suspect]
     Dosage: 300 - 37.5 MG PER DAY
     Route: 048
     Dates: start: 20110901, end: 20110905
  2. ZYPREXA [Suspect]
     Route: 048
     Dates: start: 20110331, end: 20110706
  3. ZYPREXA [Suspect]
     Route: 048
     Dates: start: 20110729, end: 20110830
  4. VENLAFAXINE HYDROCHLORIDE [Suspect]
     Dosage: 75 - 300 MG PER DAY
     Route: 048
     Dates: start: 20091203, end: 20100128
  5. ZYPREXA [Suspect]
     Route: 048
     Dates: start: 20110707, end: 20110727
  6. ARIMIDEX [Suspect]
     Route: 048
     Dates: start: 20100517
  7. VENLAFAXINE HYDROCHLORIDE [Suspect]
     Route: 048
     Dates: start: 20110331, end: 20110831
  8. ZYPREXA [Suspect]
     Route: 048
     Dates: start: 20110901, end: 20110904
  9. ZYPREXA [Suspect]
     Route: 048
     Dates: start: 20110914
  10. LORAZEPAM [Suspect]
     Route: 048
     Dates: start: 20110818, end: 20110917
  11. VENLAFAXINE HYDROCHLORIDE [Suspect]
     Route: 048
     Dates: start: 20100129, end: 20110330
  12. VENLAFAXINE HYDROCHLORIDE [Suspect]
     Route: 048
     Dates: start: 20110906
  13. ZYPREXA [Suspect]
     Route: 048
     Dates: start: 20090101
  14. ZYPREXA [Suspect]
     Route: 048
     Dates: start: 20100129, end: 20110330
  15. ZYPREXA [Suspect]
     Route: 048
     Dates: start: 20110728, end: 20110728
  16. ZYPREXA [Suspect]
     Route: 048
     Dates: start: 20110831, end: 20110831
  17. LORAZEPAM [Suspect]
     Route: 048
     Dates: start: 20110918

REACTIONS (1)
  - LIVER FUNCTION TEST ABNORMAL [None]
